FAERS Safety Report 13593710 (Version 2)
Quarter: 2017Q3

REPORT INFORMATION
  Report Type: Spontaneous
  Country: US (occurrence: US)
  Receive Date: 20170530
  Receipt Date: 20170703
  Transmission Date: 20171127
  Serious: No
  Sender: FDA-Public Use
  Company Number: US-SA-2017SA096268

PATIENT
  Age: 76 Year
  Sex: Female
  Weight: 72.57 kg

DRUGS (2)
  1. SOLOSTAR [Suspect]
     Active Substance: DEVICE
     Indication: TYPE 2 DIABETES MELLITUS
     Dates: start: 2013
  2. LANTUS SOLOSTAR [Suspect]
     Active Substance: INSULIN GLARGINE
     Indication: TYPE 2 DIABETES MELLITUS
     Dosage: DOSE:36 UNIT(S)
     Route: 051
     Dates: start: 2013

REACTIONS (3)
  - Device issue [Unknown]
  - Wrong technique in product usage process [Unknown]
  - Malaise [Unknown]

NARRATIVE: CASE EVENT DATE: 20170523
